FAERS Safety Report 8114916-6 (Version None)
Quarter: 2012Q1

REPORT INFORMATION
  Report Type: 
  Country: None (occurrence: None)
  Receive Date: 20120206
  Receipt Date: 20120131
  Transmission Date: 20120608
  Serious: Yes (Hospitalization, Other)
  Sender: FDA-Public Use
  Company Number: US-TEVA-244593USA

PATIENT
  Age: 65 Year
  Sex: Female

DRUGS (5)
  1. AZILECT [Suspect]
     Indication: PARKINSON'S DISEASE
  2. SINEMET [Suspect]
     Indication: PARKINSON'S DISEASE
  3. TRIHEXYPHENIDYL HCL [Suspect]
     Indication: PARKINSON'S DISEASE
  4. PRAMIPEXOLE DIHYDROCHLORIDE [Suspect]
     Indication: PARKINSON'S DISEASE
  5. LISINOPRIL [Concomitant]
     Indication: HYPERTENSION

REACTIONS (2)
  - CORONARY ARTERY DISSECTION [None]
  - ACUTE MYOCARDIAL INFARCTION [None]
